FAERS Safety Report 16546001 (Version 1)
Quarter: 2019Q3

REPORT INFORMATION
  Report Type: Spontaneous
  Country: US (occurrence: US)
  Receive Date: 20190528
  Receipt Date: 20190528
  Transmission Date: 20191004
  Serious: Yes (Disabling)
  Sender: FDA-Public Use
  Company Number: None

PATIENT
  Age: 63 Year
  Sex: Female
  Weight: 73.48 kg

DRUGS (12)
  1. BASIC B VITAMINS [Concomitant]
  2. TRI-K [Concomitant]
  3. VITAMIN D [Concomitant]
     Active Substance: VITAMIN D NOS
  4. INTRAROSA [Suspect]
     Active Substance: PRASTERONE
     Indication: ATROPHIC VULVOVAGINITIS
     Dosage: ?          QUANTITY:6.5 MG MILLIGRAM(S);?
     Route: 067
     Dates: start: 20190301, end: 20190324
  5. VITAMIN C [Concomitant]
     Active Substance: ASCORBIC ACID
  6. ZINC. [Concomitant]
     Active Substance: ZINC
  7. TRAZIDINE [Concomitant]
  8. MAGNESIUM [Concomitant]
     Active Substance: MAGNESIUM
  9. CALCIUM [Concomitant]
     Active Substance: CALCIUM
  10. FLUOXETINE [Concomitant]
     Active Substance: FLUOXETINE HYDROCHLORIDE
  11. MULTIPLE VITAMIN [Concomitant]
     Active Substance: VITAMINS
  12. OMEGA 3 [Concomitant]
     Active Substance: OMEGA-3 FATTY ACIDS

REACTIONS (4)
  - Suicidal ideation [None]
  - Mood swings [None]
  - Therapy cessation [None]
  - Partner stress [None]

NARRATIVE: CASE EVENT DATE: 20190321
